FAERS Safety Report 8620838-4 (Version None)
Quarter: 2012Q3

REPORT INFORMATION
  Report Type: 
  Country: None (occurrence: None)
  Receive Date: 20120824
  Receipt Date: 20120816
  Transmission Date: 20120928
  Serious: Yes (Other)
  Sender: FDA-Public Use
  Company Number: CN-ROCHE-1107323

PATIENT
  Sex: Male
  Weight: 74 kg

DRUGS (2)
  1. PEGASYS [Suspect]
     Indication: HEPATITIS B
     Route: 058
     Dates: start: 20110701, end: 20111129
  2. PEGASYS [Suspect]
     Indication: HEPATITIS C

REACTIONS (1)
  - WHITE BLOOD CELL COUNT DECREASED [None]
